FAERS Safety Report 9882955 (Version 1)
Quarter: 2014Q1

REPORT INFORMATION
  Report Type: Spontaneous
  Country: US (occurrence: None)
  Receive Date: 20140205
  Receipt Date: 20140205
  Transmission Date: 20141002
  Serious: Yes (Hospitalization)
  Sender: FDA-Public Use
  Company Number: 2013P1020489

PATIENT
  Age: 38 Year
  Sex: Male
  Weight: 144.24 kg

DRUGS (2)
  1. DILTIAZEM HCL [Suspect]
     Indication: ATRIAL FIBRILLATION
     Route: 042
     Dates: start: 20130825, end: 20130825
  2. HEPARIN [Concomitant]

REACTIONS (5)
  - Pulmonary oedema [None]
  - Pleural effusion [None]
  - Nausea [None]
  - Vomiting [None]
  - Drug ineffective [None]
